FAERS Safety Report 22604273 (Version 1)
Quarter: 2023Q2

REPORT INFORMATION
  Report Type: Spontaneous
  Country: CN (occurrence: None)
  Receive Date: 20230615
  Receipt Date: 20230615
  Transmission Date: 20230722
  Serious: Yes (Other)
  Sender: FDA-Public Use
  Company Number: CN-ROCHE-3365850

PATIENT

DRUGS (3)
  1. GAZYVA [Suspect]
     Active Substance: OBINUTUZUMAB
     Indication: Richter^s syndrome
     Dosage: 5 W RAMP-UP FROM C1D15, THEN 400MG C3D1-C35D21;1 CYCLE=21 DAYS
     Route: 042
  2. TECENTRIQ [Suspect]
     Active Substance: ATEZOLIZUMAB
     Indication: Richter^s syndrome
     Dosage: C1D2 AND C2-18 D1;1 CYCLE=21 DAYS
     Route: 065
  3. VENETOCLAX [Concomitant]
     Active Substance: VENETOCLAX
     Indication: Richter^s syndrome
     Dosage: 5 W RAMP-UP FROM C1D15, THEN 400MG C3D1-C35D21;1 CYCLE=21 DAYS

REACTIONS (22)
  - Neutropenia [Unknown]
  - Thrombocytopenia [Unknown]
  - Anaemia [Unknown]
  - Febrile neutropenia [Unknown]
  - COVID-19 [Unknown]
  - Pneumonia [Unknown]
  - Aspartate aminotransferase increased [Unknown]
  - Alanine aminotransferase increased [Unknown]
  - Gamma-glutamyltransferase increased [Unknown]
  - Atrial fibrillation [Unknown]
  - Infusion related reaction [Unknown]
  - Hypercalcaemia [Unknown]
  - Purpura [Unknown]
  - Amylase increased [Unknown]
  - Immune-mediated myositis [Unknown]
  - Immune-mediated pancreatitis [Unknown]
  - Immune-mediated encephalitis [Unknown]
  - Immune-mediated neuropathy [Unknown]
  - Myelodysplastic syndrome [Unknown]
  - Off label use [Unknown]
  - Blood bilirubin increased [Unknown]
  - Lipase increased [Unknown]
